FAERS Safety Report 5835522-X (Version None)
Quarter: 2008Q3

REPORT INFORMATION
  Report Type: 
  Country: None (occurrence: None)
  Receive Date: 20080806
  Receipt Date: 20080728
  Transmission Date: 20090109
  Serious: Yes (Hospitalization)
  Sender: FDA-Public Use
  Company Number: A0737479B

PATIENT
  Age: 29 Year
  Sex: Female

DRUGS (1)
  1. AVODART [Suspect]
     Indication: ACCIDENTAL EXPOSURE
     Route: 062
     Dates: start: 20030101, end: 20060101

REACTIONS (5)
  - ABDOMINAL DISCOMFORT [None]
  - DRUG EXPOSURE DURING PREGNANCY [None]
  - LIVE BIRTH [None]
  - POLYHYDRAMNIOS [None]
  - PREMATURE LABOUR [None]
